FAERS Safety Report 12264360 (Version 1)
Quarter: 2016Q2

REPORT INFORMATION
  Report Type: Not Available
  Country: US (occurrence: US)
  Receive Date: 20160413
  Receipt Date: 20160413
  Transmission Date: 20160815
  Serious: No
  Sender: FDA-Public Use
  Company Number: US-HISAMITSU-2015-US-001149

PATIENT
  Sex: Female

DRUGS (4)
  1. VITAMINS [Concomitant]
     Active Substance: VITAMINS
  2. SALONPAS ARTHRITIS PAIN [Suspect]
     Active Substance: MENTHOL\METHYL SALICYLATE
     Dosage: 1 PATCH
     Route: 061
     Dates: start: 201504, end: 201504
  3. SALONPAS PAIN RELIEF [Suspect]
     Active Substance: MENTHOL\METHYL SALICYLATE
     Dosage: 1 PATCH
     Route: 061
     Dates: start: 201504, end: 201504
  4. INHALER (UNSPECIFIED) [Concomitant]

REACTIONS (2)
  - Medication error [Unknown]
  - Drug ineffective [Unknown]

NARRATIVE: CASE EVENT DATE: 201504
